FAERS Safety Report 24963023 (Version 4)
Quarter: 2025Q2

REPORT INFORMATION
  Report Type: Spontaneous
  Country: US (occurrence: US)
  Receive Date: 20250213
  Receipt Date: 20250424
  Transmission Date: 20250717
  Serious: Yes (Other)
  Sender: SANOFI AVENTIS
  Company Number: US-SA-2025SA041854

PATIENT
  Age: 85 Year
  Sex: Female

DRUGS (2)
  1. DUPIXENT [Suspect]
     Active Substance: DUPILUMAB
     Indication: Dermatitis atopic
     Dosage: 300 MG, QOW
     Route: 058
     Dates: end: 20250210
  2. PREDNISONE [Suspect]
     Active Substance: PREDNISONE

REACTIONS (12)
  - Neuropathy peripheral [Unknown]
  - Abdominal pain upper [Unknown]
  - Clumsiness [Unknown]
  - Visual impairment [Unknown]
  - Fatigue [Unknown]
  - Gastritis [Unknown]
  - Dizziness [Unknown]
  - Headache [Unknown]
  - Skin burning sensation [Unknown]
  - Myalgia [Unknown]
  - Dry eye [Unknown]
  - Arthralgia [Unknown]
